FAERS Safety Report 5133994-X (Version None)
Quarter: 2006Q4

REPORT INFORMATION
  Report Type: 
  Country: None (occurrence: None)
  Receive Date: 20061023
  Receipt Date: 20061023
  Transmission Date: 20070319
  Serious: No
  Sender: FDA-Public Use
  Company Number: None

PATIENT
  Age: 46 Year
  Sex: Male
  Weight: 78.9259 kg

DRUGS (1)
  1. FLUCONAZOLE [Suspect]
     Indication: CANDIDIASIS
     Dosage: 200MG DAILY PO
     Route: 048
     Dates: start: 20060902, end: 20060902

REACTIONS (4)
  - ABDOMINAL PAIN UPPER [None]
  - PHARMACEUTICAL PRODUCT COMPLAINT [None]
  - PRURITUS [None]
  - THROAT TIGHTNESS [None]
